FAERS Safety Report 9121284 (Version 1)
Quarter: 2013Q1

REPORT INFORMATION
  Report Type: Spontaneous
  Country: US (occurrence: US)
  Receive Date: 20130225
  Receipt Date: 20130225
  Transmission Date: 20140127
  Serious: No
  Sender: FDA-Public Use
  Company Number: US-ENDO PHARMACEUTICALS INC.-FORT20110076

PATIENT
  Age: 66 None
  Sex: Male
  Weight: 61.29 kg

DRUGS (3)
  1. FORTESTA [Suspect]
     Indication: BLOOD TESTOSTERONE DECREASED
     Dosage: UNKNOWN
     Route: 061
     Dates: start: 20110915
  2. METFORMIN [Concomitant]
     Indication: DIABETES MELLITUS
     Dosage: UNKNOWN
     Route: 065
     Dates: start: 2001
  3. ACTOS [Concomitant]
     Indication: DIABETES MELLITUS
     Dosage: UNKNOWN
     Route: 065
     Dates: start: 2007

REACTIONS (1)
  - Blood glucose increased [Not Recovered/Not Resolved]
